FAERS Safety Report 8844270 (Version 2)
Quarter: 2013Q4

REPORT INFORMATION
  Report Type: Spontaneous
  Country: US (occurrence: US)
  Receive Date: 20121017
  Receipt Date: 20131231
  Transmission Date: 20140711
  Serious: Yes (Hospitalization, Other)
  Sender: FDA-Public Use
  Company Number: US-BAYER-2012-107925

PATIENT
  Age: 29 Year
  Sex: Female

DRUGS (10)
  1. YASMIN [Suspect]
     Dosage: UNK
     Dates: start: 2001, end: 2010
  2. OCELLA [Suspect]
     Dosage: UNK
     Dates: start: 2001, end: 2010
  3. BUTALBITAL, ACETAMINOPHEN + CAFFEINE [Concomitant]
     Indication: HEADACHE
     Dosage: 50/325/40, 1 TABLET EVERY 12 HOURS AS NEEDED
     Route: 048
     Dates: start: 20091013
  4. TOPIRAMATE [Concomitant]
     Dosage: 25 MG, 1 TABLET AT BEDTIME FOR 3 DAYS, THEN INCREASE TO 2 AT BEDTIME
     Route: 048
     Dates: start: 20091013
  5. OXYCODONE/APAP [Concomitant]
     Indication: PAIN
     Dosage: 5 MG/325 MG, 1 TABLET EVERY 6 HOURS AS NEEDED
     Route: 048
     Dates: start: 20091226
  6. METHYLPREDNISOLONE [Concomitant]
     Dosage: TAKE AS DIRECTED
     Dates: start: 20091229
  7. CYCLOBENZAPRINE [Concomitant]
     Indication: MUSCLE SPASMS
     Dosage: EVERY DAY, PRN
  8. IBUPROFEN [Concomitant]
  9. ACETAMINOPHEN W/OXYCODONE [Concomitant]
  10. ALBUTEROL [Concomitant]
     Dosage: PRN

REACTIONS (2)
  - Gallbladder disorder [None]
  - Cholecystitis chronic [None]
